FAERS Safety Report 23218023 (Version 2)
Quarter: 2023Q4

REPORT INFORMATION
  Report Type: Spontaneous
  Country: JP (occurrence: None)
  Receive Date: 20231122
  Receipt Date: 20231205
  Transmission Date: 20240109
  Serious: Yes (Hospitalization, Other)
  Sender: FDA-Public Use
  Company Number: 2023A262057

PATIENT
  Age: 88 Year
  Sex: Female

DRUGS (2)
  1. ONDEXXYA [Suspect]
     Active Substance: ANDEXANET ALFA
     Indication: Thalamus haemorrhage
     Dosage: 1760 MG, WAS ADMINISTERED BY METHOD B (800 MG IV AT A RATE OF 30 MG/MIN FOLLOWED BY 960 MG IV AT ...
     Route: 042
     Dates: start: 20221228, end: 20221228
  2. EDOXABAN TOSYLATE [Concomitant]
     Active Substance: EDOXABAN TOSYLATE
     Indication: Atrial fibrillation
     Dosage: 15 MG
     Route: 048
     Dates: end: 202212

REACTIONS (1)
  - Cerebral artery embolism [Recovered/Resolved with Sequelae]

NARRATIVE: CASE EVENT DATE: 20221229
